FAERS Safety Report 8069061-5 (Version None)
Quarter: 2012Q1

REPORT INFORMATION
  Report Type: 
  Country: None (occurrence: None)
  Receive Date: 20120125
  Receipt Date: 20120117
  Transmission Date: 20120608
  Serious: Yes (Hospitalization)
  Sender: FDA-Public Use
  Company Number: US-US-EMD SERONO, INC.-7107637

PATIENT
  Sex: Female
  Weight: 73 kg

DRUGS (2)
  1. THYROID MEDICATION [Concomitant]
     Indication: HYPOTHYROIDISM
  2. REBIF [Suspect]
     Indication: MULTIPLE SCLEROSIS
     Route: 058
     Dates: start: 20080912, end: 20120101

REACTIONS (1)
  - INTERVERTEBRAL DISC PROTRUSION [None]
